FAERS Safety Report 6795299-0 (Version None)
Quarter: 2010Q2

REPORT INFORMATION
  Report Type: 
  Country: None (occurrence: None)
  Receive Date: 20100624
  Receipt Date: 20100624
  Transmission Date: 20101027
  Serious: Yes (Other)
  Sender: FDA-Public Use
  Company Number: None

PATIENT
  Sex: Male
  Weight: 92.9874 kg

DRUGS (1)
  1. MOBIC [Suspect]
     Indication: MUSCULOSKELETAL CHEST PAIN
     Dates: start: 20100518, end: 20100526

REACTIONS (3)
  - FATIGUE [None]
  - HEADACHE [None]
  - PYREXIA [None]
